FAERS Safety Report 22620195 (Version 1)
Quarter: 2023Q2

REPORT INFORMATION
  Report Type: Spontaneous
  Country: US (occurrence: US)
  Receive Date: 20230620
  Receipt Date: 20230620
  Transmission Date: 20230722
  Serious: Yes (Other)
  Sender: FDA-Public Use
  Company Number: US-TORRENT-00012104

PATIENT
  Age: 23 Year
  Sex: Female

DRUGS (1)
  1. MINOCYCLINE [Suspect]
     Active Substance: MINOCYCLINE HYDROCHLORIDE
     Indication: Acne
     Dosage: 50 MG TWICE DAILY
     Route: 048

REACTIONS (4)
  - Mononeuropathy [Recovered/Resolved]
  - Vasculitis [Recovered/Resolved]
  - Arthritis [Recovered/Resolved]
  - Neuropathy peripheral [Recovered/Resolved]
